FAERS Safety Report 5632572-3 (Version None)
Quarter: 2008Q1

REPORT INFORMATION
  Report Type: 
  Country: None (occurrence: None)
  Receive Date: 20080220
  Receipt Date: 20080213
  Transmission Date: 20080703
  Serious: Yes (Hospitalization)
  Sender: FDA-Public Use
  Company Number: US-PFIZER INC-2007046940

PATIENT
  Sex: Male
  Weight: 71.7 kg

DRUGS (14)
  1. MARAVIROC [Suspect]
     Indication: HIV TEST POSITIVE
     Route: 048
     Dates: start: 20070323, end: 20070607
  2. MARAVIROC [Suspect]
     Route: 048
  3. TRUVADA [Concomitant]
     Indication: HIV TEST POSITIVE
     Dosage: TEXT:1 DF
     Route: 048
     Dates: start: 20070416, end: 20070607
  4. TRUVADA [Concomitant]
     Dosage: TEXT:1 DF
     Route: 048
  5. MK-0518 [Concomitant]
     Indication: HIV TEST POSITIVE
     Route: 048
     Dates: start: 20070323, end: 20070607
  6. MK-0518 [Concomitant]
     Route: 048
  7. ANDROGEL [Concomitant]
     Indication: CACHEXIA
     Dosage: TEXT:1 APP
     Route: 061
  8. BACTRIM DS [Concomitant]
     Indication: PROPHYLAXIS
     Dosage: TEXT:1T
     Route: 048
  9. ZITHROMAX [Concomitant]
     Indication: PROPHYLAXIS
     Route: 048
  10. VALCYTE [Concomitant]
     Indication: PROPHYLAXIS
     Route: 048
  11. LOMOTIL [Concomitant]
     Indication: DIARRHOEA
     Dosage: TEXT:2 T-FREQ:AS NEEDED
     Route: 048
  12. NEUTRA-PHOS-K [Concomitant]
     Indication: HYPOPHOSPHATAEMIA
     Dosage: TEXT:3 PACKETS
     Route: 048
  13. FUROSEMIDE [Concomitant]
     Indication: DIURETIC THERAPY
     Dosage: TEXT:1T
     Route: 048
  14. MIDAMOR [Concomitant]
     Indication: DIURETIC THERAPY
     Dosage: TEXT:1T
     Route: 048

REACTIONS (1)
  - RENAL FAILURE ACUTE [None]
